FAERS Safety Report 9842912 (Version 3)
Quarter: 2014Q2

REPORT INFORMATION
  Report Type: Spontaneous
  Country: US (occurrence: US)
  Receive Date: 20140124
  Receipt Date: 20140618
  Transmission Date: 20141212
  Serious: Yes (Hospitalization)
  Sender: FDA-Public Use
  Company Number: US-009507513-1401USA009949

PATIENT
  Sex: Female

DRUGS (1)
  1. NUVARING [Suspect]
     Indication: PRODUCT USED FOR UNKNOWN INDICATION
     Dosage: UNK
     Route: 067
     Dates: start: 20120418, end: 20120524

REACTIONS (5)
  - Deep vein thrombosis [Unknown]
  - Vena cava filter insertion [Unknown]
  - Abdominal pain [Recovering/Resolving]
  - Drug hypersensitivity [Unknown]
  - Pruritus [Unknown]
